FAERS Safety Report 11980445 (Version 3)
Quarter: 2016Q1

REPORT INFORMATION
  Report Type: Spontaneous
  Country: US (occurrence: US)
  Receive Date: 20160129
  Receipt Date: 20160222
  Transmission Date: 20160526
  Serious: Yes (Life-Threatening, Hospitalization, Other)
  Sender: FDA-Public Use
  Company Number: PHEH2016US002037

PATIENT
  Age: 75 Year
  Sex: Male
  Weight: 79.5 kg

DRUGS (1)
  1. ENTRESTO [Suspect]
     Active Substance: SACUBITRIL\VALSARTAN
     Indication: CARDIAC FAILURE CHRONIC
     Dosage: 100 MG, BID
     Route: 048
     Dates: start: 20151112, end: 20151222

REACTIONS (3)
  - Acute kidney injury [Recovered/Resolved with Sequelae]
  - Dyspnoea [Unknown]
  - Hyperkalaemia [Recovered/Resolved with Sequelae]

NARRATIVE: CASE EVENT DATE: 20151222
